FAERS Safety Report 9303444 (Version 6)
Quarter: 2014Q4

REPORT INFORMATION
  Report Type: Report from Study
  Country: JP (occurrence: JP)
  Receive Date: 20130522
  Receipt Date: 20141030
  Transmission Date: 20150529
  Serious: Yes (Death)
  Sender: FDA-Public Use
  Company Number: JP-AMGEN-JPNCT2013036390

PATIENT
  Age: 32 Year
  Sex: Female
  Weight: 44 kg

DRUGS (15)
  1. REBAMIPIDE [Concomitant]
     Active Substance: REBAMIPIDE
     Indication: PROPHYLAXIS
     Dosage: UNK, TID
     Route: 048
  2. SOSEGON                            /00052101/ [Concomitant]
     Dosage: 15 MG, UNK
     Route: 042
     Dates: start: 20130319
  3. LOXONIN [Concomitant]
     Active Substance: LOXOPROFEN SODIUM
     Dosage: UNK
     Route: 048
     Dates: start: 20130319
  4. CALONAL [Concomitant]
     Active Substance: ACETAMINOPHEN
     Indication: HEADACHE
     Dosage: 400 MG, BID
     Route: 048
     Dates: start: 20130312, end: 20130318
  5. ROMIPLOSTIM - KHK [Suspect]
     Active Substance: ROMIPLOSTIM
     Indication: IMMUNE THROMBOCYTOPENIC PURPURA
     Dosage: 225 MUG, QWK
     Route: 058
     Dates: start: 20110804
  6. NEXIUM [Concomitant]
     Active Substance: ESOMEPRAZOLE MAGNESIUM
     Indication: PROPHYLAXIS AGAINST GASTROINTESTINAL ULCER
     Dosage: 20 MG, QD
     Route: 048
     Dates: start: 20130312, end: 20130319
  7. RADICUT [Concomitant]
     Active Substance: EDARAVONE
     Dosage: 30 MG, UNK
     Route: 041
     Dates: start: 20130319, end: 20130320
  8. GASTER [Concomitant]
     Active Substance: FAMOTIDINE
     Indication: PROPHYLAXIS AGAINST GASTROINTESTINAL ULCER
     Dosage: 20 MG, BID
     Route: 048
     Dates: start: 20110712, end: 20130311
  9. GASTER [Concomitant]
     Active Substance: FAMOTIDINE
     Indication: PROPHYLAXIS
     Dosage: UNK UNK, BID
     Route: 048
  10. OZAGREL [Concomitant]
     Active Substance: OZAGREL
     Dosage: 80 MG, QD
     Route: 065
     Dates: start: 20130319, end: 20130320
  11. MUCOSTA [Concomitant]
     Active Substance: REBAMIPIDE
     Indication: PROPHYLAXIS AGAINST GASTROINTESTINAL ULCER
     Dosage: 100 MG, TID
     Route: 048
     Dates: start: 20110712, end: 20130319
  12. PREDONINE [Concomitant]
     Active Substance: PREDNISOLONE\PREDNISOLONE ACETATE\PREDNISOLONE SODIUM SUCCINATE
     Indication: IMMUNE THROMBOCYTOPENIC PURPURA
     Dosage: 15 MG, BID
     Route: 048
     Dates: start: 20110712, end: 20130319
  13. ROCEPHIN [Concomitant]
     Active Substance: CEFTRIAXONE SODIUM
     Indication: PYREXIA
     Dosage: 1 G, UNK
     Route: 065
     Dates: start: 20130319, end: 20130320
  14. FOSAMAX [Concomitant]
     Active Substance: ALENDRONATE SODIUM
     Indication: PROPHYLAXIS
     Dosage: UNK
     Route: 048
  15. PRIMPERAN [Concomitant]
     Active Substance: METOCLOPRAMIDE HYDROCHLORIDE
     Dosage: UNK
     Route: 048
     Dates: start: 20130319

REACTIONS (1)
  - Cerebral venous thrombosis [Fatal]

NARRATIVE: CASE EVENT DATE: 20130318
